FAERS Safety Report 14583357 (Version 1)
Quarter: 2018Q1

REPORT INFORMATION
  Report Type: Spontaneous
  Country: US (occurrence: US)
  Receive Date: 20180228
  Receipt Date: 20180228
  Transmission Date: 20180509
  Serious: No
  Sender: FDA-Public Use
  Company Number: US-TAIHO ONCOLOGY INC-EU-2018-00203

PATIENT
  Sex: Male

DRUGS (9)
  1. PERCOCET [Concomitant]
     Active Substance: ACETAMINOPHEN\OXYCODONE HYDROCHLORIDE
     Dosage: NI
  2. LEVOTHYROXINE SODIUM. [Concomitant]
     Active Substance: LEVOTHYROXINE SODIUM
     Dosage: NI
  3. GABAPENTIN. [Concomitant]
     Active Substance: GABAPENTIN
     Dosage: NI
  4. ONDANSETRON [Concomitant]
     Active Substance: ONDANSETRON
     Dosage: NI
  5. METFORMIN [Concomitant]
     Active Substance: METFORMIN HYDROCHLORIDE
     Dosage: NI
  6. LONSURF [Suspect]
     Active Substance: TIPIRACIL HYDROCHLORIDE\TRIFLURIDINE
     Indication: COLON CANCER
     Route: 048
     Dates: start: 20170803
  7. TESTOSTERONE. [Concomitant]
     Active Substance: TESTOSTERONE
     Dosage: NI
  8. TAMSULOSIN [Concomitant]
     Active Substance: TAMSULOSIN
     Dosage: NI
  9. XANAX [Concomitant]
     Active Substance: ALPRAZOLAM
     Dosage: NI

REACTIONS (1)
  - Nausea [Unknown]

NARRATIVE: CASE EVENT DATE: 2017
